FAERS Safety Report 8607275 (Version 4)
Quarter: 2014Q1

REPORT INFORMATION
  Report Type: Spontaneous
  Country: US (occurrence: US)
  Receive Date: 20120611
  Receipt Date: 20140328
  Transmission Date: 20141002
  Serious: No
  Sender: FDA-Public Use
  Company Number: US-ASTRAZENECA-2012SE35836

PATIENT
  Age: 55 Year
  Sex: Female
  Weight: 88.5 kg

DRUGS (11)
  1. NEXIUM [Suspect]
     Indication: GASTROOESOPHAGEAL REFLUX DISEASE
     Route: 048
     Dates: start: 200306, end: 2011
  2. NEXIUM [Suspect]
     Indication: GASTROOESOPHAGEAL REFLUX DISEASE
     Route: 048
     Dates: start: 20031210
  3. NEXIUM [Suspect]
     Indication: GASTROOESOPHAGEAL REFLUX DISEASE
     Route: 048
     Dates: start: 2003, end: 2012
  4. PREVACID [Concomitant]
     Indication: GASTROOESOPHAGEAL REFLUX DISEASE
     Dates: start: 2002
  5. PREVACID [Concomitant]
     Indication: GASTROOESOPHAGEAL REFLUX DISEASE
     Dates: start: 20030328
  6. BENAZEPRIL HCTZ [Concomitant]
     Indication: HYPERTENSION
  7. TERAZOSIN [Concomitant]
     Indication: HYPERTENSION
  8. METOPROLOL [Concomitant]
     Indication: HYPERTENSION
  9. ZYRTEC [Concomitant]
     Dates: start: 20111227
  10. VERAPAMIL [Concomitant]
     Dates: start: 20111227
  11. BENAZEPRIL/HYDROCHLOROTHIAZIDE [Concomitant]
     Dosage: 20/12.5 MG
     Dates: start: 20111227

REACTIONS (5)
  - Osteoporosis [Unknown]
  - Bone disorder [Unknown]
  - Multiple fractures [Unknown]
  - Osteoarthritis [Unknown]
  - Arthralgia [Unknown]
